FAERS Safety Report 5277043-1 (Version None)
Quarter: 2007Q1

REPORT INFORMATION
  Report Type: 
  Country: None (occurrence: None)
  Receive Date: 20070327
  Receipt Date: 20070221
  Transmission Date: 20070707
  Serious: Yes (Hospitalization, Other)
  Sender: FDA-Public Use
  Company Number: US-BRISTOL-MYERS SQUIBB COMPANY-13686779

PATIENT
  Age: 66 Year
  Sex: Female
  Weight: 75 kg

DRUGS (6)
  1. ORENCIA [Suspect]
     Indication: RHEUMATOID ARTHRITIS
     Dates: start: 20061001
  2. EVISTA [Concomitant]
  3. VOLTAREN [Concomitant]
  4. CLONAZEPAM [Concomitant]
     Dosage: DOSAGE FORM = 1 MG OR 2 MG PRN AT HS
  5. VITAMINS [Concomitant]
  6. CALCIUM [Concomitant]

REACTIONS (3)
  - ANOREXIA [None]
  - LUDWIG ANGINA [None]
  - PNEUMONIA [None]
